FAERS Safety Report 4376990-2 (Version None)
Quarter: 2004Q2

REPORT INFORMATION
  Report Type: 
  Country: None (occurrence: None)
  Receive Date: 20040614
  Receipt Date: 20030919
  Transmission Date: 20050107
  Serious: Yes (Hospitalization, Disabling)
  Sender: FDA-Public Use
  Company Number: US-MERCK-0309USA02379

PATIENT
  Age: 65 Year
  Sex: Male
  Weight: 75 kg

DRUGS (5)
  1. ASPIRIN [Concomitant]
     Route: 065
  2. VIOXX [Suspect]
     Indication: OSTEOARTHRITIS
     Route: 048
     Dates: start: 20011001, end: 20030910
  3. VIOXX [Suspect]
     Route: 048
     Dates: start: 20030924
  4. VIOXX [Suspect]
     Indication: BACK PAIN
     Route: 048
     Dates: start: 20011001, end: 20030910
  5. VIOXX [Suspect]
     Route: 048
     Dates: start: 20030924

REACTIONS (39)
  - APHASIA [None]
  - ARTHRALGIA [None]
  - ASTHENIA [None]
  - BALANCE DISORDER [None]
  - BLINDNESS UNILATERAL [None]
  - BLOOD PRESSURE DIASTOLIC DECREASED [None]
  - BLOOD PRESSURE SYSTOLIC INCREASED [None]
  - BRAIN STEM INFARCTION [None]
  - CAROTID ARTERY STENOSIS [None]
  - CEREBRAL ARTERY OCCLUSION [None]
  - CEREBRAL HAEMORRHAGE [None]
  - CEREBRAL INFARCTION [None]
  - DISORIENTATION [None]
  - DYSARTHRIA [None]
  - DYSGRAPHIA [None]
  - DYSPEPSIA [None]
  - EATING DISORDER [None]
  - EMBOLISM [None]
  - EXCORIATION [None]
  - FEELING ABNORMAL [None]
  - GASTROOESOPHAGEAL REFLUX DISEASE [None]
  - HAEMORRHAGE [None]
  - HAEMORRHAGIC STROKE [None]
  - HEADACHE [None]
  - HEMIANOPIA [None]
  - HYPERLIPIDAEMIA [None]
  - LOCALISED INFECTION [None]
  - MUSCULOSKELETAL STIFFNESS [None]
  - MYALGIA [None]
  - NASAL CONGESTION [None]
  - PETECHIAE [None]
  - PRURITUS [None]
  - RASH ERYTHEMATOUS [None]
  - RHINITIS ALLERGIC [None]
  - SINUS CONGESTION [None]
  - SKIN LACERATION [None]
  - SPEECH DISORDER [None]
  - TEMPERATURE INTOLERANCE [None]
  - VISUAL FIELD DEFECT [None]
